FAERS Safety Report 9562459 (Version 1)
Quarter: 2013Q3

REPORT INFORMATION
  Report Type: Spontaneous
  Country: GB (occurrence: GB)
  Receive Date: 20130927
  Receipt Date: 20130927
  Transmission Date: 20140515
  Serious: Yes (Hospitalization)
  Sender: FDA-Public Use
  Company Number: GB-GLAXOSMITHKLINE-B0923898A

PATIENT
  Sex: Male

DRUGS (6)
  1. PAROXETINE [Suspect]
     Dosage: 50MG PER DAY
     Route: 048
  2. OLANZAPINE [Suspect]
     Dosage: 7.5MG PER DAY
     Route: 048
     Dates: end: 20130830
  3. AMISULPRIDE [Suspect]
     Dosage: 1200MG PER DAY
     Route: 048
     Dates: end: 20130829
  4. METFORMIN [Concomitant]
  5. PIOGLITAZONE [Concomitant]
  6. SIMVASTATIN [Concomitant]

REACTIONS (3)
  - Neuroleptic malignant syndrome [Unknown]
  - Fall [Unknown]
  - Blood creatine phosphokinase increased [Unknown]
